FAERS Safety Report 6481207-9 (Version None)
Quarter: 2009Q4

REPORT INFORMATION
  Report Type: 
  Country: None (occurrence: None)
  Receive Date: 20091208
  Receipt Date: 20090312
  Transmission Date: 20100525
  Serious: No
  Sender: FDA-Public Use
  Company Number: US-AMGEN-KDL338196

PATIENT
  Sex: Female
  Weight: 85.8 kg

DRUGS (7)
  1. ENBREL [Suspect]
     Indication: RHEUMATOID ARTHRITIS
     Route: 058
     Dates: start: 19990301
  2. METHOTREXATE [Concomitant]
     Dates: start: 20090115
  3. LISINOPRIL [Concomitant]
  4. ALENDRONATE SODIUM [Concomitant]
  5. PREDNISONE [Concomitant]
  6. HYDROCHLOROTHIAZIDE [Concomitant]
  7. HYDROCODONE [Concomitant]

REACTIONS (3)
  - LEUKOCYTOCLASTIC VASCULITIS [None]
  - NERVE COMPRESSION [None]
  - RHEUMATOID ARTHRITIS [None]
